FAERS Safety Report 23286005 (Version 1)
Quarter: 2023Q4

REPORT INFORMATION
  Report Type: Spontaneous
  Country: US (occurrence: None)
  Receive Date: 20231211
  Receipt Date: 20231211
  Transmission Date: 20240109
  Serious: No
  Sender: FDA-Public Use
  Company Number: None

PATIENT
  Age: 47 Year
  Sex: Male
  Weight: 102.97 kg

DRUGS (4)
  1. RINVOQ [Suspect]
     Active Substance: UPADACITINIB
     Indication: Rheumatoid arthritis
     Dosage: FREQUENCY : DAILY;?
     Route: 048
     Dates: start: 202308
  2. RINVOQ [Suspect]
     Active Substance: UPADACITINIB
     Indication: Polyarthritis
  3. RINVOQ [Suspect]
     Active Substance: UPADACITINIB
     Indication: Osteoarthritis
  4. RINVOQ [Suspect]
     Active Substance: UPADACITINIB
     Indication: Psoriasis

REACTIONS (2)
  - Nasopharyngitis [None]
  - Intentional dose omission [None]
